FAERS Safety Report 4497377-8 (Version None)
Quarter: 2004Q4

REPORT INFORMATION
  Report Type: 
  Country: None (occurrence: None)
  Receive Date: 20041104
  Receipt Date: 20041022
  Transmission Date: 20050328
  Serious: Yes (Hospitalization, Disabling)
  Sender: FDA-Public Use
  Company Number: FABR-10802

PATIENT
  Age: 56 Year
  Sex: Male
  Weight: 61.3 kg

DRUGS (7)
  1. FABRAZYME [Suspect]
     Indication: FABRY'S DISEASE
     Dosage: 70 MG Q2WKS IV
     Route: 042
     Dates: start: 20040322
  2. COUMADIN [Concomitant]
  3. DILANTIN [Concomitant]
  4. RENAPLEX [Concomitant]
  5. ALLOPURINOL [Concomitant]
  6. PAXIL [Concomitant]
  7. VITAMIN D [Concomitant]

REACTIONS (7)
  - ARTHROPATHY [None]
  - BONE GRAFT [None]
  - EPIPHYSEAL FRACTURE [None]
  - IMPAIRED HEALING [None]
  - INJURY [None]
  - LOWER LIMB FRACTURE [None]
  - PAIN [None]
